FAERS Safety Report 16122381 (Version 1)
Quarter: 2019Q2

REPORT INFORMATION
  Report Type: Spontaneous
  Country: US (occurrence: US)
  Receive Date: 20190326
  Receipt Date: 20190326
  Transmission Date: 20190711
  Serious: No
  Sender: FDA-Public Use
  Company Number: None

PATIENT
  Age: 58 Year
  Sex: Female
  Weight: 60.75 kg

DRUGS (2)
  1. JARDIANCE [Suspect]
     Active Substance: EMPAGLIFLOZIN
     Indication: TYPE 2 DIABETES MELLITUS
     Dosage: ?          QUANTITY:1 TABLET(S);?
     Route: 048
     Dates: start: 20190227
  2. LOSARTIN POTASSIUM 25 MG TAB [Concomitant]

REACTIONS (4)
  - Dizziness [None]
  - Hypoaesthesia [None]
  - Vision blurred [None]
  - Fungal infection [None]

NARRATIVE: CASE EVENT DATE: 20190320
